FAERS Safety Report 7951136-X (Version None)
Quarter: 2011Q4

REPORT INFORMATION
  Report Type: 
  Country: None (occurrence: None)
  Receive Date: 20111201
  Receipt Date: 20111122
  Transmission Date: 20120403
  Serious: Yes (Hospitalization)
  Sender: FDA-Public Use
  Company Number: US-BRISTOL-MYERS SQUIBB COMPANY-16242810

PATIENT
  Age: 66 Year
  Sex: Female
  Weight: 59 kg

DRUGS (17)
  1. MEGACE [Suspect]
     Route: 048
  2. EXTRA STRENGTH TYLENOL [Concomitant]
     Dosage: TABS
     Route: 048
  3. FERGON [Suspect]
     Indication: IRON DEFICIENCY ANAEMIA
     Route: 048
  4. SIMVASTATIN [Suspect]
  5. ARTIFICIAL TEARS [Concomitant]
     Dosage: 1DF=4 GTT
     Route: 047
  6. CIPROFLOXACIN [Concomitant]
     Dosage: 1DF= 1000MG/10ML
  7. AMLODIPINE [Suspect]
     Dosage: TABS
  8. COLACE [Suspect]
  9. TESSALON [Suspect]
     Dosage: CAPS
  10. ZOFRAN [Suspect]
     Dosage: TABS. EVERY 6 HOURS
     Route: 048
  11. MAGNESIUM CITRATE [Suspect]
     Indication: SURGERY
     Dosage: CITRATE OF MAGNESIA
     Route: 048
  12. LORTAB [Suspect]
     Dosage: EVERY 6 HOURS
  13. SUNITINIB MALATE [Suspect]
     Dosage: TAB
  14. ASPIRIN [Concomitant]
  15. CARVEDILOL [Suspect]
  16. RANITIDINE [Suspect]
  17. PIOGLITAZONE HCL [Suspect]
     Route: 048

REACTIONS (6)
  - ABDOMINAL PAIN [None]
  - MALAISE [None]
  - COGNITIVE DISORDER [None]
  - FATIGUE [None]
  - VOMITING [None]
  - HEADACHE [None]
